FAERS Safety Report 24772549 (Version 5)
Quarter: 2025Q2

REPORT INFORMATION
  Report Type: Spontaneous
  Country: US (occurrence: US)
  Receive Date: 20241224
  Receipt Date: 20250404
  Transmission Date: 20250717
  Serious: Yes (Other)
  Sender: SANDOZ
  Company Number: US-SANDOZ-SDZ2024US104559

PATIENT
  Age: 59 Year
  Sex: Female
  Weight: 65 kg

DRUGS (2)
  1. RECLAST [Suspect]
     Active Substance: ZOLEDRONIC ACID
     Indication: Osteoporosis postmenopausal
     Route: 042
     Dates: start: 20230104
  2. RECLAST [Suspect]
     Active Substance: ZOLEDRONIC ACID
     Route: 042
     Dates: start: 2024

REACTIONS (4)
  - Nodule [Not Recovered/Not Resolved]
  - Chronic cutaneous lupus erythematosus [Unknown]
  - Interstitial lung disease [Unknown]
  - Ill-defined disorder [Unknown]

NARRATIVE: CASE EVENT DATE: 20240101
